FAERS Safety Report 20624933 (Version 1)
Quarter: 2022Q1

REPORT INFORMATION
  Report Type: Spontaneous
  Country: US (occurrence: US)
  Receive Date: 20220323
  Receipt Date: 20220323
  Transmission Date: 20220423
  Serious: No
  Sender: FDA-Public Use
  Company Number: US-AMGEN-USASP2022044564

PATIENT
  Age: 71 Year
  Sex: Male

DRUGS (2)
  1. PARSABIV [Suspect]
     Active Substance: ETELCALCETIDE HYDROCHLORIDE
     Indication: Product used for unknown indication
     Dosage: UNK
     Route: 065
  2. PARSABIV [Suspect]
     Active Substance: ETELCALCETIDE HYDROCHLORIDE
     Dosage: 2.5 UNK
     Route: 065

REACTIONS (4)
  - Somnolence [Unknown]
  - Sleep disorder due to a general medical condition [Unknown]
  - Abdominal discomfort [Not Recovered/Not Resolved]
  - Diarrhoea [Not Recovered/Not Resolved]
